FAERS Safety Report 10373417 (Version 1)
Quarter: 2014Q3

REPORT INFORMATION
  Report Type: Spontaneous
  Country: US (occurrence: US)
  Receive Date: 20140808
  Receipt Date: 20140808
  Transmission Date: 20150326
  Serious: No
  Sender: FDA-Public Use
  Company Number: US-BRISTOL-MYERS SQUIBB COMPANY-20590055

PATIENT
  Age: 54 Year
  Sex: Female

DRUGS (1)
  1. SPRYCEL [Suspect]
     Active Substance: DASATINIB
     Indication: CHRONIC MYELOID LEUKAEMIA
     Dosage: STARTED 140MG/WK,DROPPED TO 100MG/WK REDUCED TO 70MG

REACTIONS (6)
  - Bronchitis [Unknown]
  - Pleural effusion [Unknown]
  - Burning sensation [Unknown]
  - Drug dose omission [Unknown]
  - Chromaturia [Unknown]
  - Paraesthesia [Unknown]
